FAERS Safety Report 8367102-9 (Version None)
Quarter: 2012Q1

REPORT INFORMATION
  Report Type: 
  Country: None (occurrence: None)
  Receive Date: 20120323
  Receipt Date: 20110727
  Transmission Date: 20120608
  Serious: Yes (Hospitalization)
  Sender: FDA-Public Use
  Company Number: 163-21880-11073271

PATIENT
  Age: 77 Year
  Sex: Female

DRUGS (9)
  1. FENTANYL [Concomitant]
  2. ERGOCALCIFEROL (ERGOCACLCIFEROL) [Concomitant]
  3. SYNTHROID [Concomitant]
  4. LORAZEPAM [Concomitant]
  5. FUROSEMIIDE (FUROSEMIDE) [Concomitant]
  6. VICODIN [Concomitant]
  7. DOCUSATE SODIUM (DOCUSATE SODIUM) [Concomitant]
  8. REVLIMID [Suspect]
     Indication: MULTIPLE MYELOMA
     Dosage: 10 MG, 1 IN 1 D, PO
     Route: 048
     Dates: start: 20090630
  9. POTASSIUM CHLORIDE CR (POTASSIUM CHLORIDE) [Concomitant]

REACTIONS (1)
  - HIP FRACTURE [None]
